FAERS Safety Report 19965116 (Version 2)
Quarter: 2021Q4

REPORT INFORMATION
  Report Type: Spontaneous
  Country: BR (occurrence: BR)
  Receive Date: 20211018
  Receipt Date: 20211022
  Transmission Date: 20220303
  Serious: Yes (Hospitalization)
  Sender: FDA-Public Use
  Company Number: BR-BIOMARINAP-BR-2021-139006

PATIENT
  Age: 15 Year
  Sex: Female

DRUGS (1)
  1. VIMIZIM [Suspect]
     Active Substance: ELOSULFASE ALFA
     Indication: Mucopolysaccharidosis IV
     Dosage: 12 VIALS, QW
     Route: 042
     Dates: start: 20150708

REACTIONS (4)
  - Respiratory failure [Unknown]
  - Oxygen saturation decreased [Unknown]
  - Infection [Unknown]
  - Pyrexia [Unknown]
